FAERS Safety Report 20618232 (Version 2)
Quarter: 2022Q2

REPORT INFORMATION
  Report Type: Other
  Country: PH (occurrence: None)
  Receive Date: 20220321
  Receipt Date: 20220411
  Transmission Date: 20220721
  Serious: Yes (Hospitalization, Other)
  Sender: FDA-Public Use
  Company Number: PH-ROCHE-3046997

PATIENT
  Age: 69 Year
  Sex: Female

DRUGS (3)
  1. AVASTIN [Suspect]
     Active Substance: BEVACIZUMAB
     Indication: Malignant peritoneal neoplasm
     Dosage: 400MG 1 VIAL EVERY 21 DAYS
     Route: 042
  2. TENOFOVIR [Concomitant]
     Active Substance: TENOFOVIR
     Dosage: 25MG 1 TABLET PER DAY
     Route: 048
  3. BISOPROLOL [Concomitant]
     Active Substance: BISOPROLOL
     Dosage: 5MG 1 TABLET PER DAY
     Route: 048

REACTIONS (3)
  - SARS-CoV-2 test positive [Unknown]
  - Asthenia [Unknown]
  - Pulmonary oedema [Unknown]

NARRATIVE: CASE EVENT DATE: 20220308
